FAERS Safety Report 8331947-1 (Version None)
Quarter: 2012Q2

REPORT INFORMATION
  Report Type: 
  Country: None (occurrence: None)
  Receive Date: 20120502
  Receipt Date: 20120420
  Transmission Date: 20120825
  Serious: Yes (Other)
  Sender: FDA-Public Use
  Company Number: US-ELI_LILLY_AND_COMPANY-US201102005963

PATIENT
  Sex: Female

DRUGS (4)
  1. FORTEO [Suspect]
     Dosage: 20 UG, QD
     Route: 065
  2. FORTEO [Suspect]
     Indication: OSTEOPOROSIS
     Dosage: 20 UG, QD
     Route: 065
     Dates: start: 20110127
  3. FORTEO [Suspect]
     Dosage: 20 UG, QD
     Route: 065
  4. FORTEO [Suspect]
     Dosage: 20 UG, QD
     Route: 065

REACTIONS (14)
  - RHINORRHOEA [None]
  - CHILLS [None]
  - INJECTION SITE PAIN [None]
  - LETHARGY [None]
  - INFLUENZA LIKE ILLNESS [None]
  - BONE PAIN [None]
  - FATIGUE [None]
  - ASTHENIA [None]
  - HEART RATE INCREASED [None]
  - MALAISE [None]
  - RENAL CYST [None]
  - INJECTION SITE PRURITUS [None]
  - CONSTIPATION [None]
  - INJECTION SITE HAEMATOMA [None]
